FAERS Safety Report 10707423 (Version 3)
Quarter: 2015Q2

REPORT INFORMATION
  Report Type: Spontaneous
  Country: US (occurrence: US)
  Receive Date: 20150113
  Receipt Date: 20150416
  Transmission Date: 20150821
  Serious: Yes (Hospitalization, Other)
  Sender: FDA-Public Use
  Company Number: US-ASTELLAS-2015US000742

PATIENT
  Age: 45 Year
  Sex: Male

DRUGS (2)
  1. XTANDI [Suspect]
     Active Substance: ENZALUTAMIDE
     Indication: PROSTATE CANCER
     Route: 048
     Dates: start: 20141015
  2. XTANDI [Suspect]
     Active Substance: ENZALUTAMIDE
     Route: 048
     Dates: start: 20150212

REACTIONS (4)
  - Hospitalisation [Not Recovered/Not Resolved]
  - Back pain [Unknown]
  - Recurrent cancer [Unknown]
  - Dizziness [Unknown]

NARRATIVE: CASE EVENT DATE: 201412
